FAERS Safety Report 9732867 (Version 2)
Quarter: 2014Q1

REPORT INFORMATION
  Report Type: Spontaneous
  Country: US (occurrence: US)
  Receive Date: 20131205
  Receipt Date: 20140226
  Transmission Date: 20141002
  Serious: Yes (Other)
  Sender: FDA-Public Use
  Company Number: US-BRISTOL-MYERS SQUIBB COMPANY-19867308

PATIENT
  Age: 53 Year
  Sex: Male

DRUGS (19)
  1. BYETTA PEN DISPOSABLE [Suspect]
     Indication: TYPE 2 DIABETES MELLITUS
     Dosage: 5 MCGL0.02 ML PER DOSE SUB-Q PEN INJECTOR I TWICE A DAY REPLACES LANTUS, REGULAR
     Dates: start: 20090707, end: 201005
  2. COREG [Concomitant]
  3. ASPIRIN [Concomitant]
  4. VITAMIN D [Concomitant]
     Dosage: 1,000 UNIT TAB 1 ONCE A DAY FOR 90 DAYS, DISPENSE 90 , REFILLS 3
  5. ZOCOR [Concomitant]
     Dosage: 40 MG TAB 1 EVERY EVENING FOR 90 DAYS
  6. DEPLIN [Concomitant]
  7. LORATADINE [Concomitant]
  8. KAPIDEX [Concomitant]
  9. METFORMIN HCL [Concomitant]
     Dosage: 500 MG 24 HR TAB, GR 2 EVERY EVENING FOR 90 DAYS
  10. PRANDIN [Concomitant]
  11. VICTOZA [Concomitant]
     Dosage: 0.6 MGIO.1I ML (18 MG/3 ML) SUB-Q PEN INJECTOR 1.2 ONCE A DAY FOR 90 DAYS
     Route: 058
  12. IMDUR [Concomitant]
  13. BENICAR HCT [Concomitant]
     Dosage: 40 MG-25 MG
  14. TESTOSTERONE CYPIONATE [Concomitant]
     Dosage: 200 MG/ML IM OIL 100 MILLIGRAM EVERY WEEK
  15. NORVASC [Concomitant]
  16. RANEXA [Concomitant]
  17. VITAMIN B12 [Concomitant]
     Dosage: 2MG
  18. NICOTINE [Concomitant]
     Dosage: 2 1 MGL24HR- 1 4MG/24HR-7MG/24HR TRANSDERM. PATCH 1 ONCE A DAY
     Route: 062
  19. PERCOCET [Concomitant]
     Dosage: 325/5 P PRN?5 MG-325 MG TAB I TWICE A DAY

REACTIONS (1)
  - Thyroid cancer [Unknown]
